FAERS Safety Report 7659163-7 (Version None)
Quarter: 2011Q3

REPORT INFORMATION
  Report Type: 
  Country: None (occurrence: None)
  Receive Date: 20110805
  Receipt Date: 20110728
  Transmission Date: 20111222
  Serious: Yes (Hospitalization)
  Sender: FDA-Public Use
  Company Number: FR-GLAXOSMITHKLINE-B0736883A

PATIENT
  Sex: Female

DRUGS (6)
  1. CHLORAMBUCIL [Suspect]
     Indication: CHRONIC LYMPHOCYTIC LEUKAEMIA
     Dosage: 50MG EVERY TWO WEEKS
     Route: 048
     Dates: start: 20110106
  2. BISOPROLOL FUMARATE [Concomitant]
  3. VALACICLOVIR [Concomitant]
     Dates: start: 20110127
  4. ALLOPURINOL [Concomitant]
     Dates: start: 20100401
  5. BACTRIM DS [Concomitant]
     Dates: start: 20110127
  6. STUDY MEDICATION [Suspect]
     Indication: CHRONIC LYMPHOCYTIC LEUKAEMIA
     Dosage: 1000MG PER DAY
     Route: 042
     Dates: start: 20110106

REACTIONS (1)
  - ESCHERICHIA SEPSIS [None]
